FAERS Safety Report 6432738-9 (Version None)
Quarter: 2009Q4

REPORT INFORMATION
  Report Type: 
  Country: None (occurrence: None)
  Receive Date: 20091105
  Receipt Date: 20091021
  Transmission Date: 20100525
  Serious: Yes (Hospitalization, Other)
  Sender: FDA-Public Use
  Company Number: THQ2009A04632

PATIENT
  Age: 35 Year
  Sex: Female

DRUGS (12)
  1. LANSOPRAZOLE [Suspect]
     Dosage: 30 MG (30 MG, 1 IN 1 D);
  2. DIAZEPAM [Suspect]
  3. FOLIC ACID [Suspect]
     Dosage: 5 MG (5 MG, 1 IN 1 D) PER ORAL
     Route: 048
  4. CLOZARIL [Suspect]
     Indication: SCHIZOPHRENIA
     Dosage: 250 MG, PER ORAL
     Route: 048
     Dates: end: 20050519
  5. CLOZARIL [Suspect]
     Indication: SCHIZOPHRENIA
     Dosage: 250 MG, PER ORAL
     Route: 048
     Dates: start: 20060605, end: 20060713
  6. FERROUS SULFATE TAB [Suspect]
     Dosage: 400 MG (200 MG, 2 IN 1 D), PER ORAL
     Route: 048
  7. LACTULOSE [Suspect]
  8. PERINDOPRIL ERBUMINE [Suspect]
  9. TRIMETHOPRIM [Suspect]
  10. ZOPICLONE [Suspect]
  11. FUROSEMIDE [Suspect]
  12. RAMIPRIL [Suspect]

REACTIONS (19)
  - ABDOMINAL TENDERNESS [None]
  - BODY MASS INDEX DECREASED [None]
  - CARDIAC MURMUR [None]
  - CONSTIPATION [None]
  - DIABETES MELLITUS [None]
  - HIATUS HERNIA [None]
  - IRON DEFICIENCY ANAEMIA [None]
  - MALAISE [None]
  - MEAN CELL VOLUME DECREASED [None]
  - MONOCYTE COUNT INCREASED [None]
  - NEUTROPHIL COUNT INCREASED [None]
  - PHYSICAL ASSAULT [None]
  - PYREXIA [None]
  - SINUS TACHYCARDIA [None]
  - SKIN DISORDER [None]
  - STAPHYLOCOCCAL INFECTION [None]
  - THROMBOCYTOSIS [None]
  - URINARY TRACT INFECTION [None]
  - WHITE BLOOD CELL COUNT INCREASED [None]
